FAERS Safety Report 7637512-3 (Version None)
Quarter: 2011Q3

REPORT INFORMATION
  Report Type: 
  Country: None (occurrence: None)
  Receive Date: 20110726
  Receipt Date: 20110718
  Transmission Date: 20111222
  Serious: Yes (Death, Hospitalization)
  Sender: FDA-Public Use
  Company Number: US-ALLERGAN-1108867US

PATIENT
  Age: 78 Year
  Sex: Female
  Weight: 89.9 kg

DRUGS (14)
  1. TRIAMCINOLONE [Concomitant]
     Indication: SKIN DISORDER
     Dosage: UNK
     Route: 061
     Dates: start: 20110316
  2. RALOXIFENE HCL [Concomitant]
     Indication: OSTEOPOROSIS PROPHYLAXIS
     Dosage: 60 MG, UNK
  3. LEVOTHYROXINE SODIUM [Concomitant]
     Indication: THYROID DISORDER
     Dosage: 150 A?G, UNK
     Route: 048
  4. KLONOPIN [Concomitant]
     Indication: CONVULSION
     Dosage: .5 MG, BID
     Route: 048
     Dates: start: 20110316, end: 20110415
  5. LAMOTRIGINE [Concomitant]
     Indication: BIPOLAR DISORDER
     Dosage: 150 MG, BID
     Route: 048
     Dates: start: 20110429
  6. CYMBALTA [Concomitant]
     Indication: DEPRESSION
     Dosage: 60 MG, QD
     Route: 048
     Dates: end: 20110415
  7. SERTRALINE HYDROCHLORIDE [Concomitant]
     Indication: DEPRESSION
     Dosage: 50 MG, QD
     Route: 048
     Dates: start: 20110119, end: 20110415
  8. FERROUS SULFATE TAB [Concomitant]
     Indication: ANAEMIA
     Dosage: 65 MG, BID
     Route: 048
     Dates: start: 20110223
  9. VITAMIN D [Concomitant]
     Indication: VITAMIN D DEFICIENCY
     Dosage: 1 DF, QD
     Route: 048
     Dates: start: 20110223
  10. TRAZODONE HCL [Concomitant]
     Indication: DEPRESSION
     Dosage: 100 MG, QHS
     Dates: end: 20110415
  11. BOTULINUM TOXIN TYPE A [Suspect]
     Indication: TORTICOLLIS
     Dosage: 110 UNITS, SINGLE
     Route: 030
     Dates: start: 20110525, end: 20110525
  12. LITHIUM CARBONATE [Concomitant]
     Indication: BIPOLAR DISORDER
     Dosage: 1 DF, BID
     Route: 048
     Dates: start: 20110429
  13. QUETIAPINE [Concomitant]
     Indication: DEPRESSION
     Dosage: 100 MG, QD
     Route: 048
     Dates: start: 20110119, end: 20110424
  14. VITAMIN E NATURAL [Concomitant]
     Indication: PRODUCT USED FOR UNKNOWN INDICATION
     Dosage: 1 DF, QD
     Route: 048
     Dates: start: 20110429

REACTIONS (1)
  - TOXICITY TO VARIOUS AGENTS [None]
